FAERS Safety Report 8358316-2 (Version None)
Quarter: 2012Q2

REPORT INFORMATION
  Report Type: 
  Country: None (occurrence: None)
  Receive Date: 20120514
  Receipt Date: 20110419
  Transmission Date: 20120825
  Serious: No
  Sender: FDA-Public Use
  Company Number: US-ALEXION-A201100555

PATIENT
  Sex: Female

DRUGS (6)
  1. OXYCONTIN [Concomitant]
     Indication: PRODUCT USED FOR UNKNOWN INDICATION
     Dosage: 20 UG, BID
     Route: 048
  2. BENADRYL [Concomitant]
     Indication: SLEEP DISORDER
     Dosage: UNK
     Route: 048
  3. ESZOPICLONE [Concomitant]
     Indication: SLEEP DISORDER
     Dosage: 4 MG, QD (QHS)
     Route: 048
  4. EXJADE [Concomitant]
     Indication: PRODUCT USED FOR UNKNOWN INDICATION
     Dosage: 2000 MG, QD
     Route: 048
  5. SOLIRIS [Suspect]
     Indication: PAROXYSMAL NOCTURNAL HAEMOGLOBINURIA
     Dosage: 900 MG, Q2W
     Route: 042
     Dates: start: 20070501
  6. TYLENOL (CAPLET) [Concomitant]
     Indication: PRODUCT USED FOR UNKNOWN INDICATION
     Dosage: UNK
     Route: 048

REACTIONS (4)
  - AMENORRHOEA [None]
  - HAEMOGLOBIN DECREASED [None]
  - FATIGUE [None]
  - BACK PAIN [None]
